FAERS Safety Report 14422575 (Version 4)
Quarter: 2018Q1

REPORT INFORMATION
  Report Type: Report from Study
  Country: US (occurrence: US)
  Receive Date: 20180123
  Receipt Date: 20180320
  Transmission Date: 20180509
  Serious: Yes (Hospitalization, Other)
  Sender: FDA-Public Use
  Company Number: US-ROCHE-2055442

PATIENT
  Age: 53 Year
  Sex: Female

DRUGS (13)
  1. PREDNISONE. [Concomitant]
     Active Substance: PREDNISONE
     Indication: ARTHRITIS
     Route: 065
  2. NYSTATIN. [Concomitant]
     Active Substance: NYSTATIN
  3. OCREVUS [Suspect]
     Active Substance: OCRELIZUMAB
     Indication: RELAPSING-REMITTING MULTIPLE SCLEROSIS
     Route: 042
     Dates: start: 20170628
  4. GLIPIZIDE. [Concomitant]
     Active Substance: GLIPIZIDE
  5. CELEBREX [Concomitant]
     Active Substance: CELECOXIB
  6. MOTRIN [Concomitant]
     Active Substance: IBUPROFEN
  7. OCREVUS [Suspect]
     Active Substance: OCRELIZUMAB
     Route: 042
     Dates: start: 20180226
  8. BACLOFEN. [Concomitant]
     Active Substance: BACLOFEN
  9. WELLBUTRIN [Concomitant]
     Active Substance: BUPROPION HYDROCHLORIDE
  10. OCREVUS [Suspect]
     Active Substance: OCRELIZUMAB
     Route: 042
     Dates: start: 20170712
  11. KCL [Concomitant]
     Active Substance: POTASSIUM CHLORIDE
  12. LEVOTHYROXINE. [Concomitant]
     Active Substance: LEVOTHYROXINE
  13. NITROFURANTOIN. [Concomitant]
     Active Substance: NITROFURANTOIN

REACTIONS (18)
  - Cellulitis [Unknown]
  - Vision blurred [Unknown]
  - Mobility decreased [Unknown]
  - Fall [Unknown]
  - Nausea [Unknown]
  - Hypotonia [Unknown]
  - Dizziness [Unknown]
  - Palpitations [Unknown]
  - Pain [Unknown]
  - Wound infection [Unknown]
  - Urinary tract infection [Recovered/Resolved]
  - Gait inability [Unknown]
  - Carpal tunnel syndrome [Unknown]
  - Nervous system disorder [Unknown]
  - Blister [Unknown]
  - Peroneal nerve palsy [Unknown]
  - Muscular weakness [Unknown]
  - Neuropathy peripheral [Unknown]

NARRATIVE: CASE EVENT DATE: 201711
